FAERS Safety Report 6505197-5 (Version None)
Quarter: 2009Q4

REPORT INFORMATION
  Report Type: 
  Country: None (occurrence: None)
  Receive Date: 20091218
  Receipt Date: 20091215
  Transmission Date: 20100525
  Serious: Yes (Death)
  Sender: FDA-Public Use
  Company Number: PHHY2009JP55891

PATIENT
  Sex: Female

DRUGS (3)
  1. ZOLEDRONATE T29581++HM [Suspect]
     Indication: METASTASES TO BONE
     Dosage: 4 MG DILUTED TO 100 ML
     Dates: start: 20080325, end: 20080325
  2. MORPHINE HYDROCHLORIDE [Concomitant]
     Indication: CANCER PAIN
     Dosage: UNK
     Route: 042
     Dates: start: 20080423, end: 20080501
  3. DECADRON                                /CAN/ [Concomitant]
     Indication: CANCER PAIN
     Dosage: UNK
     Route: 042
     Dates: start: 20080314, end: 20080501

REACTIONS (1)
  - DEATH [None]
